FAERS Safety Report 7271622-8 (Version None)
Quarter: 2011Q1

REPORT INFORMATION
  Report Type: 
  Country: None (occurrence: None)
  Receive Date: 20110203
  Receipt Date: 20110120
  Transmission Date: 20110831
  Serious: Yes (Other)
  Sender: FDA-Public Use
  Company Number: US-ELI_LILLY_AND_COMPANY-US201101005286

PATIENT
  Age: 63 Year
  Sex: Female

DRUGS (5)
  1. NASONEX [Concomitant]
     Dosage: 1 D/F, UNK
  2. MULTI-VITAMIN [Concomitant]
     Dosage: 1 D/F, UNK
  3. CALCIUM [Concomitant]
     Dosage: 1 D/F, UNK
  4. AMBIEN CR [Concomitant]
     Dosage: 1 D/F, UNK
  5. EVISTA [Suspect]
     Indication: OSTEOPOROSIS
     Dosage: 60 MG, DAILY (1/D)

REACTIONS (1)
  - BRAIN NEOPLASM [None]
